FAERS Safety Report 9129958 (Version 1)
Quarter: 2013Q1

REPORT INFORMATION
  Report Type: Report from Study
  Country: CA (occurrence: CA)
  Receive Date: 20130228
  Receipt Date: 20130228
  Transmission Date: 20140127
  Serious: Yes (Death, Hospitalization)
  Sender: FDA-Public Use
  Company Number: CA-ABBOTT-13P-028-1055263-00

PATIENT
  Sex: Male
  Weight: 81.72 kg

DRUGS (1)
  1. LUPRON DEPOT [Suspect]
     Indication: PROSTATE CANCER
     Route: 030
     Dates: start: 20080609

REACTIONS (3)
  - Lung neoplasm malignant [Fatal]
  - Thyroid cancer [Fatal]
  - Hospitalisation [Unknown]
